FAERS Safety Report 17203385 (Version 1)
Quarter: 2019Q4

REPORT INFORMATION
  Report Type: Spontaneous
  Country: CZ (occurrence: CZ)
  Receive Date: 20191226
  Receipt Date: 20191226
  Transmission Date: 20200122
  Serious: Yes (Other)
  Sender: FDA-Public Use
  Company Number: NVSC2019CZ078820

PATIENT
  Age: 73 Year
  Sex: Male

DRUGS (2)
  1. HYDROCORTISONE. [Suspect]
     Active Substance: HYDROCORTISONE
     Indication: PRODUCT USED FOR UNKNOWN INDICATION
     Dosage: 200 MG
     Route: 065
  2. AMOXICILLIN,CLAVULANIC ACID [Suspect]
     Active Substance: AMOXICILLIN\CLAVULANIC ACID
     Indication: PRODUCT USED FOR UNKNOWN INDICATION
     Dosage: 1.2 G, Q8H
     Route: 065

REACTIONS (3)
  - C-reactive protein increased [Recovering/Resolving]
  - Chest X-ray abnormal [Not Recovered/Not Resolved]
  - Pyrexia [Recovered/Resolved]
